FAERS Safety Report 23295769 (Version 2)
Quarter: 2024Q1

REPORT INFORMATION
  Report Type: Spontaneous
  Country: RO (occurrence: None)
  Receive Date: 20231214
  Receipt Date: 20240102
  Transmission Date: 20240410
  Serious: Yes (Hospitalization, Other)
  Sender: FDA-Public Use
  Company Number: RO-Unichem Pharmaceuticals (USA) Inc-UCM202312-001555

PATIENT
  Age: 33 Year
  Sex: Male

DRUGS (2)
  1. QUETIAPINE [Suspect]
     Active Substance: QUETIAPINE
     Indication: Product used for unknown indication
  2. VENLAFAXINE [Suspect]
     Active Substance: VENLAFAXINE HYDROCHLORIDE
     Indication: Product used for unknown indication

REACTIONS (12)
  - Circulatory collapse [Recovered/Resolved]
  - Ventricular extrasystoles [Recovered/Resolved]
  - Blood lactic acid increased [Recovered/Resolved]
  - Cardiotoxicity [Recovered/Resolved]
  - Ventricular tachycardia [Recovered/Resolved]
  - Generalised tonic-clonic seizure [Recovered/Resolved]
  - Loss of consciousness [Recovered/Resolved]
  - Coma scale abnormal [Recovered/Resolved]
  - Coma [Recovered/Resolved]
  - Electrocardiogram QT prolonged [Recovered/Resolved]
  - Intentional overdose [Unknown]
  - Suicide attempt [Unknown]
